FAERS Safety Report 9923171 (Version 1)
Quarter: 2014Q1

REPORT INFORMATION
  Report Type: Spontaneous
  Country: US (occurrence: US)
  Receive Date: 20140225
  Receipt Date: 20140225
  Transmission Date: 20141002
  Serious: No
  Sender: FDA-Public Use
  Company Number: US-AMGEN-USASP2013070714

PATIENT
  Age: 49 Year
  Sex: Male

DRUGS (7)
  1. ENBREL [Suspect]
     Indication: PRODUCT USED FOR UNKNOWN INDICATION
     Dosage: 50 MG/ML, 2 TIMES/WK (FOR THREE MONTHS)
     Route: 065
  2. ASPIRIN [Concomitant]
     Dosage: 81 MG, EC
  3. LISINOPRIL [Concomitant]
     Dosage: 10 MG, UNK
  4. SIMVASTATIN [Concomitant]
     Dosage: 10 MG, UNK
  5. FISH OIL [Concomitant]
     Dosage: UNK
  6. DIAZEPAM [Concomitant]
     Dosage: 2 MG, UNK
  7. HYDROCODONE W/APAP                 /00607101/ [Concomitant]
     Dosage: UNK,2.5-500

REACTIONS (1)
  - Arthralgia [Unknown]
